FAERS Safety Report 24558226 (Version 1)
Quarter: 2024Q4

REPORT INFORMATION
  Report Type: Spontaneous
  Country: GB (occurrence: GB)
  Receive Date: 20241028
  Receipt Date: 20241028
  Transmission Date: 20250114
  Serious: Yes (Other)
  Sender: TEVA
  Company Number: GB-MHRA-TPP2816944C10528567YC1729006829902

PATIENT
  Age: 30 Year
  Sex: Female
  Weight: 51 kg

DRUGS (5)
  1. DOXYCYCLINE [Suspect]
     Active Substance: DOXYCYCLINE
     Indication: Ill-defined disorder
     Dosage: TPP YC - PLEASE RECLASSIFY
     Route: 065
     Dates: start: 20241015
  2. DOXYCYCLINE [Concomitant]
     Active Substance: DOXYCYCLINE
     Indication: Ill-defined disorder
     Dosage: TAKE TWO CAPSULES NOW ON DAY 1 THEN TAKE ONE CA..., TPP YC - PLEASE RECLASSIFY
     Dates: start: 20241008, end: 20241013
  3. ALBUTEROL [Concomitant]
     Active Substance: ALBUTEROL
     Indication: Ill-defined disorder
     Dosage: TAKE ONE OR TWO PUFFS WHEN REQUIRED FOR BREATHL..., TPP YC - PLEASE RECLASSIFY
     Route: 055
     Dates: start: 20241008
  4. ACETAMINOPHEN\CODEINE PHOSPHATE [Concomitant]
     Active Substance: ACETAMINOPHEN\CODEINE PHOSPHATE
     Indication: Ill-defined disorder
     Dosage: ONE TO TWO TABLETS TO BE TAKEN EVERY FOUR TO SIX HOURS WHEN REQUIRED FOR PAIN RELIEF. MAXIMUM 8 T...
     Dates: start: 20241008
  5. NAPROXEN [Concomitant]
     Active Substance: NAPROXEN
     Indication: Ill-defined disorder
     Dosage: WITH OR AFTER FOOD, TPP YC - PLEASE RECLASSIFY
     Dates: start: 20240807, end: 20240821

REACTIONS (1)
  - Visual impairment [Recovered/Resolved]

NARRATIVE: CASE EVENT DATE: 20241015
